FAERS Safety Report 23112795 (Version 2)
Quarter: 2025Q4

REPORT INFORMATION
  Report Type: Spontaneous
  Country: KR (occurrence: KR)
  Receive Date: 20231027
  Receipt Date: 20251226
  Transmission Date: 20260118
  Serious: Yes (Hospitalization, Other)
  Sender: CELLTRION
  Company Number: KR-CELLTRION INC.-2023KR020474

PATIENT

DRUGS (6)
  1. INFLIXIMAB [Suspect]
     Active Substance: INFLIXIMAB
     Indication: Colitis ulcerative
     Dosage: UNK
     Route: 058
  2. INFLIXIMAB [Suspect]
     Active Substance: INFLIXIMAB
     Indication: Colitis ulcerative
     Dosage: UNK
     Route: 042
     Dates: start: 20231010
  3. BECLOMETHASONE DIPROPIONATE [Concomitant]
     Active Substance: BECLOMETHASONE DIPROPIONATE
     Dosage: 5 MG
     Route: 048
     Dates: start: 20231016
  4. ENOXAPARIN SODIUM [Concomitant]
     Active Substance: ENOXAPARIN SODIUM
     Dosage: 0.4 ML
     Route: 042
     Dates: start: 20231016
  5. METHYSOL [Concomitant]
     Indication: Colitis ulcerative
     Dosage: 125 MILLIGRAM
     Route: 042
     Dates: start: 20231016
  6. METHYSOL [Concomitant]
     Dosage: 50 MG, EVERY 1 DAY
     Route: 042
     Dates: start: 20231015, end: 20231023

REACTIONS (5)
  - Diarrhoea haemorrhagic [Recovered/Resolved]
  - Haematochezia [Recovered/Resolved]
  - Pyrexia [Recovered/Resolved]
  - Diarrhoea [Unknown]
  - Cough [Unknown]

NARRATIVE: CASE EVENT DATE: 20231015
